FAERS Safety Report 23852655 (Version 5)
Quarter: 2025Q3

REPORT INFORMATION
  Report Type: Report from Study
  Country: US (occurrence: US)
  Receive Date: 20240514
  Receipt Date: 20250702
  Transmission Date: 20251020
  Serious: Yes (Other)
  Sender: NOVARTIS
  Company Number: US-002147023-NVSC2024US099460

PATIENT
  Age: 79 Year
  Sex: Male
  Weight: 76.19 kg

DRUGS (3)
  1. LEQVIO [Suspect]
     Active Substance: INCLISIRAN SODIUM
     Indication: Blood cholesterol increased
     Route: 030
     Dates: start: 20231206
  2. LEQVIO [Suspect]
     Active Substance: INCLISIRAN SODIUM
     Route: 030
     Dates: start: 202403
  3. LEQVIO [Suspect]
     Active Substance: INCLISIRAN SODIUM
     Route: 058
     Dates: start: 20250423

REACTIONS (9)
  - Autoimmune disorder [Unknown]
  - Arthralgia [Not Recovered/Not Resolved]
  - Discomfort [Unknown]
  - Pain in jaw [Unknown]
  - Vision blurred [Unknown]
  - Arthritis [Unknown]
  - Musculoskeletal stiffness [Unknown]
  - Headache [Unknown]
  - Myalgia [Unknown]

NARRATIVE: CASE EVENT DATE: 20240101
